FAERS Safety Report 25114612 (Version 5)
Quarter: 2025Q4

REPORT INFORMATION
  Report Type: Spontaneous
  Country: US (occurrence: US)
  Receive Date: 20250324
  Receipt Date: 20251103
  Transmission Date: 20260118
  Serious: No
  Sender: SANOFI AVENTIS
  Company Number: US-SANOFI-02456715

PATIENT
  Age: 72 Year
  Sex: Female
  Weight: 58.957 kg

DRUGS (11)
  1. DUPIXENT [Suspect]
     Active Substance: DUPILUMAB
     Indication: Eczema
     Dosage: 300 MG, QOW
     Route: 058
     Dates: start: 20241219, end: 202502
  2. DUPIXENT [Suspect]
     Active Substance: DUPILUMAB
     Indication: Dermatitis atopic
     Dosage: 300 MG, QOW
     Route: 058
     Dates: start: 2025
  3. DUPIXENT [Suspect]
     Active Substance: DUPILUMAB
     Indication: Eosinophilic oesophagitis
  4. DUPIXENT [Suspect]
     Active Substance: DUPILUMAB
     Indication: Thyroid disorder
  5. DUPIXENT [Suspect]
     Active Substance: DUPILUMAB
     Indication: Arthritis
  6. DUPIXENT [Suspect]
     Active Substance: DUPILUMAB
     Indication: Osteoporosis
  7. CALCIUM [Concomitant]
     Active Substance: CALCIUM
     Dosage: UNK
  8. LEVOTHYROXINE SODIUM [Concomitant]
     Active Substance: LEVOTHYROXINE SODIUM
     Dosage: UNK
  9. METHOTREXATE [Concomitant]
     Active Substance: METHOTREXATE
     Dosage: UNK
  10. PROLIA [Concomitant]
     Active Substance: DENOSUMAB
  11. NEMLUVIO [Concomitant]
     Active Substance: NEMOLIZUMAB-ILTO
     Dosage: UNK

REACTIONS (8)
  - Rebound atopic dermatitis [Recovered/Resolved]
  - Pruritus [Recovered/Resolved]
  - Skin fissures [Unknown]
  - Dry skin [Unknown]
  - Skin exfoliation [Unknown]
  - Pruritus [Unknown]
  - Product use in unapproved indication [Unknown]
  - Drug ineffective [Unknown]

NARRATIVE: CASE EVENT DATE: 20241219
